FAERS Safety Report 8837494 (Version 1)
Quarter: 2012Q4

REPORT INFORMATION
  Report Type: 
  Country: IN (occurrence: US)
  Receive Date: 20121012
  Receipt Date: 20121012
  Transmission Date: 20130627
  Serious: No
  Sender: FDA-Public Use
  Company Number: US-BAYER-2012-106223

PATIENT
  Age: 55 Year
  Sex: Female

DRUGS (4)
  1. CLIMARA [Suspect]
     Dosage: UNK, OW
     Route: 062
     Dates: start: 201209
  2. TYLENOL [PARACETAMOL] [Concomitant]
     Route: 048
  3. VITAMIN D [Concomitant]
     Route: 048
  4. PROBIOTICA [Concomitant]

REACTIONS (2)
  - Product adhesion issue [None]
  - Headache [Not Recovered/Not Resolved]
